FAERS Safety Report 6045547-X (Version None)
Quarter: 2009Q1

REPORT INFORMATION
  Report Type: 
  Country: None (occurrence: None)
  Receive Date: 20090121
  Receipt Date: 20090113
  Transmission Date: 20090719
  Serious: Yes (Death)
  Sender: FDA-Public Use
  Company Number: B0554852A

PATIENT

DRUGS (9)
  1. METHADONE HCL [Suspect]
  2. CHLORPROMAZINE [Suspect]
  3. TRAMADOL HCL [Suspect]
  4. AMITRIPTYLINE HCL [Suspect]
  5. NORTRIPTYLINE HCL [Suspect]
  6. COCAINE [Suspect]
  7. HYDROCODONE BITARTRATE [Suspect]
  8. FENTANYL CITRATE [Suspect]
  9. CLONAZEPAM [Concomitant]
     Dosage: 1MG FOUR TIMES PER DAY

REACTIONS (1)
  - ACCIDENTAL POISONING [None]
